FAERS Safety Report 11774402 (Version 2)
Quarter: 2016Q1

REPORT INFORMATION
  Report Type: Spontaneous
  Country: US (occurrence: US)
  Receive Date: 20151124
  Receipt Date: 20160127
  Transmission Date: 20160525
  Serious: Yes (Other)
  Sender: FDA-Public Use
  Company Number: US-SA-2015SA192091

PATIENT
  Age: 72 Year
  Sex: Male
  Weight: 123.83 kg

DRUGS (2)
  1. ALIROCUMAB PREFILLED PEN [Concomitant]
     Active Substance: ALIROCUMAB
     Dates: start: 201509
  2. PRALUENT [Suspect]
     Active Substance: ALIROCUMAB
     Indication: BLOOD CHOLESTEROL INCREASED
     Dosage: AUTO INJECTOR PEN
     Route: 058
     Dates: start: 201509

REACTIONS (6)
  - Fatigue [Unknown]
  - Myocardial infarction [Unknown]
  - Cancer surgery [Unknown]
  - Myalgia [Unknown]
  - Nasal congestion [Unknown]
  - Depressed mood [Unknown]

NARRATIVE: CASE EVENT DATE: 2015
